FAERS Safety Report 9812767 (Version 2)
Quarter: 2014Q2

REPORT INFORMATION
  Report Type: Spontaneous
  Country: FR (occurrence: FR)
  Receive Date: 20140113
  Receipt Date: 20140630
  Transmission Date: 20141212
  Serious: Yes (Other)
  Sender: FDA-Public Use
  Company Number: FR-AMGEN-FRASP2014001830

PATIENT
  Age: 67 Year
  Sex: Female

DRUGS (1)
  1. ENBREL [Suspect]
     Indication: PRODUCT USED FOR UNKNOWN INDICATION
     Dosage: UNK
     Route: 065
     Dates: start: 2013, end: 20140128

REACTIONS (7)
  - Arthropathy [Unknown]
  - Cough [Unknown]
  - Arthralgia [Unknown]
  - Drug ineffective [Unknown]
  - Infection [Unknown]
  - Nasopharyngitis [Unknown]
  - Erysipelas [Unknown]
